FAERS Safety Report 17693437 (Version 1)
Quarter: 2020Q2

REPORT INFORMATION
  Report Type: Spontaneous
  Country: US (occurrence: US)
  Receive Date: 20200422
  Receipt Date: 20200422
  Transmission Date: 20200714
  Serious: Yes (Hospitalization)
  Sender: FDA-Public Use
  Company Number: None

PATIENT
  Age: 77 Year
  Sex: Female
  Weight: 99.45 kg

DRUGS (10)
  1. METOPROLOL. [Concomitant]
     Active Substance: METOPROLOL
  2. LEVOTHYROXINE. [Concomitant]
     Active Substance: LEVOTHYROXINE
  3. PRIMIDONE. [Concomitant]
     Active Substance: PRIMIDONE
  4. FUROSEMIDE. [Concomitant]
     Active Substance: FUROSEMIDE
  5. GABAPENTIN. [Concomitant]
     Active Substance: GABAPENTIN
  6. PROLIA [Suspect]
     Active Substance: DENOSUMAB
     Indication: OSTEOPOROSIS
     Dosage: ?          OTHER ROUTE:INJECTED INTO FATTY PART OF BACK OF ARM?
     Dates: start: 20200331
  7. ROPINEROLE [Concomitant]
     Active Substance: ROPINIROLE
  8. LOSARTAN. [Concomitant]
     Active Substance: LOSARTAN
  9. TYLENOL [Concomitant]
     Active Substance: ACETAMINOPHEN
  10. ELEQUIS [Concomitant]

REACTIONS (8)
  - Pain [None]
  - Abdominal pain upper [None]
  - Peripheral swelling [None]
  - Cystitis [None]
  - Erythema [None]
  - Pneumonia [None]
  - Constipation [None]
  - Arthralgia [None]

NARRATIVE: CASE EVENT DATE: 20200417
